FAERS Safety Report 13105098 (Version 1)
Quarter: 2017Q1

REPORT INFORMATION
  Report Type: Spontaneous
  Country: US (occurrence: US)
  Receive Date: 20170110
  Receipt Date: 20170110
  Transmission Date: 20170428
  Serious: Yes (Death, Hospitalization)
  Sender: FDA-Public Use
  Company Number: None

PATIENT
  Age: 68 Year
  Sex: Female

DRUGS (1)
  1. THALOMID [Suspect]
     Active Substance: THALIDOMIDE
     Indication: APHTHOUS ULCER
     Route: 048
     Dates: start: 20161027

REACTIONS (5)
  - Hypercalcaemia [None]
  - Hyperkalaemia [None]
  - Asthenia [None]
  - Dyspnoea [None]
  - Renal failure [None]

NARRATIVE: CASE EVENT DATE: 20161104
